FAERS Safety Report 5737688-9 (Version None)
Quarter: 2008Q2

REPORT INFORMATION
  Report Type: 
  Country: None (occurrence: None)
  Receive Date: 20080514
  Receipt Date: 20080509
  Transmission Date: 20081010
  Serious: Yes (Hospitalization)
  Sender: FDA-Public Use
  Company Number: CH-WYE-G01515808

PATIENT
  Age: 26 Year
  Sex: Male

DRUGS (10)
  1. RAPAMUNE [Suspect]
     Indication: STEM CELL TRANSPLANT
     Route: 048
     Dates: start: 20080307, end: 20080401
  2. CYCLOSPORINE [Interacting]
     Indication: STEM CELL TRANSPLANT
     Dosage: UNKNOWN
     Route: 048
     Dates: start: 20060701, end: 20070720
  3. CELLCEPT [Concomitant]
     Indication: STEM CELL TRANSPLANT
     Route: 048
  4. COVERSUM [Concomitant]
     Route: 048
  5. DIFLUCAN [Concomitant]
     Route: 048
  6. BACTRIM [Concomitant]
     Dosage: 800/160 MG, 3 DOSES PER WEEK
     Route: 048
  7. FAMVIR [Concomitant]
     Route: 048
  8. PANTOPRAZOLE SODIUM [Concomitant]
     Route: 048
  9. TACROLIMUS [Interacting]
     Indication: STEM CELL TRANSPLANT
     Dosage: UNKNOWN
     Route: 048
     Dates: start: 20070720, end: 20080307
  10. PREDNISONE TAB [Concomitant]
     Route: 048

REACTIONS (8)
  - ANAEMIA [None]
  - BLOOD LACTATE DEHYDROGENASE INCREASED [None]
  - DISEASE PROGRESSION [None]
  - DRUG INTERACTION [None]
  - KIDNEY FIBROSIS [None]
  - RENAL FAILURE [None]
  - THROMBOCYTOPENIA [None]
  - THROMBOTIC MICROANGIOPATHY [None]
